FAERS Safety Report 7509812-9 (Version None)
Quarter: 2011Q2

REPORT INFORMATION
  Report Type: 
  Country: None (occurrence: None)
  Receive Date: 20110527
  Receipt Date: 20110520
  Transmission Date: 20111010
  Serious: Yes (Other)
  Sender: FDA-Public Use
  Company Number: A0917563A

PATIENT
  Sex: Female

DRUGS (7)
  1. SINGULAIR [Concomitant]
  2. PROAIR HFA [Concomitant]
  3. FLOVENT [Suspect]
     Indication: ASTHMA
     Dosage: 2PUFF TWICE PER DAY
     Route: 055
     Dates: start: 20070201
  4. ZYRTEC [Concomitant]
  5. LEVOXYL [Concomitant]
  6. NIFEDIPINE [Concomitant]
  7. ZOCOR [Concomitant]

REACTIONS (4)
  - COUGH [None]
  - ASTHMA [None]
  - PULMONARY CONGESTION [None]
  - PRODUCT QUALITY ISSUE [None]
